FAERS Safety Report 4528242-5 (Version None)
Quarter: 2004Q4

REPORT INFORMATION
  Report Type: 
  Country: None (occurrence: None)
  Receive Date: 20041130
  Receipt Date: 20041005
  Transmission Date: 20050328
  Serious: No
  Sender: FDA-Public Use
  Company Number: WAES 0311USA01519

PATIENT
  Age: 64 Year
  Sex: Female
  Weight: 72.5755 kg

DRUGS (10)
  1. ZETIA [Suspect]
     Indication: HYPERCHOLESTEROLAEMIA
     Dosage: 10 MG DAILY PO
     Route: 048
     Dates: start: 20030827, end: 20031106
  2. COZAAR [Concomitant]
  3. HYDRODIURIL [Concomitant]
  4. K-TAB [Concomitant]
  5. KLOR-CON [Concomitant]
  6. LOPID [Concomitant]
  7. LOPRESSOR [Concomitant]
  8. ZOCOR [Concomitant]
  9. ACETAMINOPHEN (+) HYDROCODONE BI [Concomitant]
  10. FAMOTIDINE [Concomitant]

REACTIONS (2)
  - BLOOD CREATINE PHOSPHOKINASE INCREASED [None]
  - MYALGIA [None]
